FAERS Safety Report 12647521 (Version 1)
Quarter: 2016Q3

REPORT INFORMATION
  Report Type: Spontaneous
  Country: FR (occurrence: FR)
  Receive Date: 20160812
  Receipt Date: 20160812
  Transmission Date: 20161109
  Serious: Yes (Other)
  Sender: FDA-Public Use
  Company Number: PHHY2016FR110525

PATIENT
  Age: 76 Year
  Sex: Male

DRUGS (2)
  1. STALEVO [Suspect]
     Active Substance: CARBIDOPA\ENTACAPONE\LEVODOPA
     Indication: PRODUCT USED FOR UNKNOWN INDICATION
     Dosage: 3 DF, ONCE IN MORNING (200 MG/100 MG/25 MG)
     Route: 048
     Dates: start: 20160725
  2. STALEVO [Suspect]
     Active Substance: CARBIDOPA\ENTACAPONE\LEVODOPA
     Dosage: 2 DF, ONCE  (200 MG/125 MG/31.25 MG)
     Route: 048
     Dates: start: 20160725, end: 20160725

REACTIONS (4)
  - Dry mouth [Recovered/Resolved]
  - Speech disorder [Recovered/Resolved]
  - Dyskinesia [Recovered/Resolved]
  - Medication error [Recovered/Resolved]

NARRATIVE: CASE EVENT DATE: 20160725
